FAERS Safety Report 9273643 (Version 1)
Quarter: 2013Q2

REPORT INFORMATION
  Report Type: Spontaneous
  Country: US (occurrence: US)
  Receive Date: 20130506
  Receipt Date: 20130506
  Transmission Date: 20140414
  Serious: No
  Sender: FDA-Public Use
  Company Number: US-AMGEN-USASP2013029907

PATIENT
  Age: 46 Year
  Sex: Female

DRUGS (1)
  1. ENBREL [Suspect]
     Indication: RHEUMATOID ARTHRITIS
     Dosage: 50 MG, QWK
     Dates: start: 20130130, end: 20130421

REACTIONS (8)
  - Local swelling [Recovered/Resolved]
  - Pain [Not Recovered/Not Resolved]
  - Erythema [Recovered/Resolved]
  - Skin induration [Not Recovered/Not Resolved]
  - Wound [Recovered/Resolved]
  - Alopecia [Recovered/Resolved]
  - Scab [Not Recovered/Not Resolved]
  - Abscess [Recovered/Resolved]
